FAERS Safety Report 7033692-1 (Version None)
Quarter: 2010Q4

REPORT INFORMATION
  Report Type: 
  Country: None (occurrence: None)
  Receive Date: 20101005
  Receipt Date: 20100927
  Transmission Date: 20110411
  Serious: Yes (Death)
  Sender: FDA-Public Use
  Company Number: 2010US003995

PATIENT
  Age: 7 Year

DRUGS (4)
  1. PROGRAF [Suspect]
     Indication: LIVER TRANSPLANT
  2. PROGRAF [Suspect]
     Indication: SMALL INTESTINE TRANSPLANT
  3. PREDNISONE TAB [Suspect]
     Indication: LIVER TRANSPLANT
  4. PREDNISONE TAB [Suspect]
     Indication: SMALL INTESTINE TRANSPLANT

REACTIONS (1)
  - CYTOMEGALOVIRUS ENTERITIS [None]
